FAERS Safety Report 5224717-4 (Version None)
Quarter: 2007Q1

REPORT INFORMATION
  Report Type: 
  Country: None (occurrence: None)
  Receive Date: 20070131
  Receipt Date: 20070126
  Transmission Date: 20070707
  Serious: Yes (Death, Hospitalization)
  Sender: FDA-Public Use
  Company Number: ESWYE386229JAN07

PATIENT
  Age: 38 Year
  Sex: Female

DRUGS (4)
  1. TAZOCEL [Suspect]
     Indication: SEPSIS
     Dosage: UNKNOWN
     Dates: start: 20060510, end: 20060513
  2. ITRACONAZOLE [Suspect]
     Indication: SEPSIS
     Dosage: UNKNOWN
     Dates: start: 20060510, end: 20060513
  3. COTRIM [Suspect]
     Indication: SEPSIS
     Dosage: UNKNOWN
     Dates: start: 20060510, end: 20060513
  4. VANCOMYCIN [Suspect]
     Indication: SEPSIS
     Dosage: UNKNOWN
     Dates: start: 20060510, end: 20060513

REACTIONS (2)
  - HAEMOLYSIS [None]
  - HYPOVOLAEMIC SHOCK [None]
